FAERS Safety Report 4371757-3 (Version None)
Quarter: 2004Q2

REPORT INFORMATION
  Report Type: 
  Country: None (occurrence: None)
  Receive Date: 20040604
  Receipt Date: 20040604
  Transmission Date: 20050107
  Serious: Yes (Other)
  Sender: FDA-Public Use
  Company Number: None

PATIENT
  Sex: Female
  Weight: 90.7194 kg

DRUGS (1)
  1. DEPO-PROVERA [Suspect]
     Dosage: SHOT
     Dates: start: 19970101, end: 19990102

REACTIONS (2)
  - AMENORRHOEA [None]
  - INFERTILITY FEMALE [None]
